FAERS Safety Report 4848068-2 (Version None)
Quarter: 2005Q4

REPORT INFORMATION
  Report Type: 
  Country: None (occurrence: None)
  Receive Date: 20051205
  Receipt Date: 20051205
  Transmission Date: 20060501
  Serious: Yes (Life-Threatening, Hospitalization)
  Sender: FDA-Public Use
  Company Number: None

PATIENT
  Age: 58 Year
  Sex: Female
  Weight: 68.0396 kg

DRUGS (2)
  1. PAXIL [Suspect]
     Indication: ANXIETY
  2. PAXIL [Suspect]
     Indication: DEPRESSION

REACTIONS (7)
  - ANGER [None]
  - DEPRESSION [None]
  - IMPRISONMENT [None]
  - INJURY [None]
  - IRRITABILITY [None]
  - MEMORY IMPAIRMENT [None]
  - SUICIDE ATTEMPT [None]
